FAERS Safety Report 8968251 (Version 1)
Quarter: 2012Q4

REPORT INFORMATION
  Report Type: Spontaneous
  Country: CN (occurrence: None)
  Receive Date: 20121210
  Receipt Date: 20121210
  Transmission Date: 20130627
  Serious: Yes (Hospitalization, Other)
  Sender: FDA-Public Use
  Company Number: CN-010271

PATIENT

DRUGS (2)
  1. MINIRIN [Suspect]
     Indication: DIABETES
     Route: 048
  2. MINIRIN [Suspect]
     Indication: HYPONATRAEMIA
     Route: 048

REACTIONS (5)
  - Posterior reversible encephalopathy syndrome [None]
  - Visual acuity reduced [None]
  - Hyponatraemia [None]
  - Muscle twitching [None]
  - Gaze palsy [None]
